FAERS Safety Report 6403934-1 (Version None)
Quarter: 2009Q4

REPORT INFORMATION
  Report Type: 
  Country: None (occurrence: None)
  Receive Date: 20091016
  Receipt Date: 20090727
  Transmission Date: 20100525
  Serious: No
  Sender: FDA-Public Use
  Company Number: US-ALEXION-A200900447

PATIENT
  Sex: Male

DRUGS (8)
  1. SOLIRIS [Suspect]
     Indication: PAROXYSMAL NOCTURNAL HAEMOGLOBINURIA
     Dosage: 600 MG, QW
     Route: 042
     Dates: start: 20080717, end: 20080807
  2. SOLIRIS [Suspect]
     Dosage: 900 MG, Q2W
     Route: 042
     Dates: start: 20080814, end: 20090627
  3. TYLENOL (CAPLET) [Concomitant]
     Dosage: UNK
     Route: 048
  4. FOLIC ACID [Concomitant]
     Dosage: UNK
     Route: 048
  5. SIMVASTATIN [Concomitant]
     Dosage: UNK
     Route: 048
  6. BENADRYL [Concomitant]
     Dosage: UNK
     Route: 048
  7. ANUSOL                             /00117301/ [Concomitant]
     Dosage: UNK
     Route: 054
  8. LUNESTA [Concomitant]
     Indication: INSOMNIA
     Dosage: UNK
     Route: 048

REACTIONS (1)
  - DRUG INEFFECTIVE [None]
